FAERS Safety Report 18705874 (Version 1)
Quarter: 2021Q1

REPORT INFORMATION
  Report Type: Report from Study
  Country: None (occurrence: IE)
  Receive Date: 20210106
  Receipt Date: 20210106
  Transmission Date: 20210419
  Serious: Yes (Death, Hospitalization)
  Sender: FDA-Public Use
  Company Number: IE-ABBVIE-21K-229-3717879-00

PATIENT
  Age: 85 Year
  Sex: Female

DRUGS (1)
  1. HUMIRA [Suspect]
     Active Substance: ADALIMUMAB
     Indication: RHEUMATOID ARTHRITIS
     Route: 058
     Dates: start: 20190313, end: 20201028

REACTIONS (3)
  - Pulmonary fibrosis [Recovered/Resolved]
  - Pulmonary fibrosis [Fatal]
  - Malaise [Fatal]

NARRATIVE: CASE EVENT DATE: 202005
